FAERS Safety Report 7330224-5 (Version None)
Quarter: 2011Q1

REPORT INFORMATION
  Report Type: 
  Country: None (occurrence: None)
  Receive Date: 20110303
  Receipt Date: 20110223
  Transmission Date: 20110831
  Serious: Yes (Other)
  Sender: FDA-Public Use
  Company Number: CA-AMGEN-CANSP2011010656

PATIENT
  Age: 71 Year
  Sex: Male

DRUGS (3)
  1. ATIVAN [Concomitant]
     Dosage: UNK UNK, PRN
  2. NEUPOGEN [Suspect]
     Indication: CHEMOTHERAPY
     Dosage: 300 A?G, PER CHEMO REGIM
     Route: 058
  3. STEMETIL                           /00013301/ [Concomitant]
     Dosage: UNK UNK, PRN

REACTIONS (1)
  - DISORIENTATION [None]
